FAERS Safety Report 23613978 (Version 1)
Quarter: 2024Q1

REPORT INFORMATION
  Report Type: Spontaneous
  Country: US (occurrence: US)
  Receive Date: 20240310
  Receipt Date: 20240310
  Transmission Date: 20240409
  Serious: Yes (Other)
  Sender: FDA-Public Use
  Company Number: US-BoehringerIngelheim-2024-BI-012671

PATIENT
  Age: 73 Year
  Sex: Female

DRUGS (2)
  1. SPIRIVA HANDIHALER [Suspect]
     Active Substance: TIOTROPIUM BROMIDE MONOHYDRATE
     Indication: Emphysema
     Route: 055
     Dates: start: 2017
  2. ALBUTEROL [Concomitant]
     Active Substance: ALBUTEROL
     Indication: Product used for unknown indication
     Dosage: LIQUID PUMP

REACTIONS (18)
  - Breast cancer [Unknown]
  - Dyspnoea [Not Recovered/Not Resolved]
  - Sinus congestion [Not Recovered/Not Resolved]
  - Dry mouth [Not Recovered/Not Resolved]
  - Dry eye [Not Recovered/Not Resolved]
  - Chest pain [Not Recovered/Not Resolved]
  - Pneumonia [Unknown]
  - Radiation injury [Unknown]
  - Gait disturbance [Not Recovered/Not Resolved]
  - Oxygen saturation decreased [Unknown]
  - Presyncope [Unknown]
  - Nausea [Unknown]
  - Dizziness [Unknown]
  - Disorientation [Unknown]
  - Nerve injury [Not Recovered/Not Resolved]
  - Vision blurred [Unknown]
  - Diplopia [Unknown]
  - Post procedural complication [Not Recovered/Not Resolved]

NARRATIVE: CASE EVENT DATE: 20170101
